FAERS Safety Report 4971425-0 (Version None)
Quarter: 2006Q2

REPORT INFORMATION
  Report Type: 
  Country: None (occurrence: None)
  Receive Date: 20060411
  Receipt Date: 20060411
  Transmission Date: 20061013
  Serious: Yes (Other)
  Sender: FDA-Public Use
  Company Number: None

PATIENT
  Age: 61 Year
  Sex: Male
  Weight: 79.3795 kg

DRUGS (1)
  1. ZOCOR [Suspect]
     Indication: LIPIDS INCREASED
     Dosage: 40 MG PO
     Route: 048
     Dates: start: 20050904, end: 20060301

REACTIONS (2)
  - DRUG INTOLERANCE [None]
  - VISION BLURRED [None]
